FAERS Safety Report 9529021 (Version 3)
Quarter: 2013Q4

REPORT INFORMATION
  Report Type: Report from Study
  Country: US (occurrence: US)
  Receive Date: 20130917
  Receipt Date: 20131226
  Transmission Date: 20140711
  Serious: Yes (Hospitalization)
  Sender: FDA-Public Use
  Company Number: US-JNJFOC-20130905677

PATIENT
  Age: 15 Year
  Sex: Female
  Weight: 42.2 kg

DRUGS (19)
  1. REMICADE [Suspect]
     Indication: CROHN^S DISEASE
     Route: 042
     Dates: start: 20091030, end: 20100527
  2. TUMS [Concomitant]
     Route: 065
  3. CIMZIA [Concomitant]
     Route: 065
     Dates: start: 20130215
  4. BUDESONIDE [Concomitant]
     Route: 065
  5. PROZAC [Concomitant]
     Route: 065
  6. PROTONIX [Concomitant]
     Route: 065
  7. 5-ASA [Concomitant]
     Route: 048
  8. VITAMIN D [Concomitant]
     Route: 065
  9. MULTIVITAMINS [Concomitant]
     Route: 065
  10. IMODIUM [Concomitant]
     Route: 065
  11. IMIPRAMINE [Concomitant]
     Route: 065
  12. BENTYL [Concomitant]
     Route: 065
  13. METHOTREXATE [Concomitant]
     Route: 065
  14. FOLATE [Concomitant]
     Route: 065
  15. PROTONIX [Concomitant]
     Route: 065
  16. ENTOCORT [Concomitant]
     Route: 065
  17. PENTASA [Concomitant]
     Route: 065
  18. SIMETHICONE [Concomitant]
     Route: 065
  19. ENSURE [Concomitant]
     Route: 065

REACTIONS (1)
  - Crohn^s disease [Recovered/Resolved with Sequelae]
